FAERS Safety Report 7002131-9 (Version None)
Quarter: 2010Q3

REPORT INFORMATION
  Report Type: 
  Country: None (occurrence: None)
  Receive Date: 20100920
  Receipt Date: 20100301
  Transmission Date: 20110219
  Serious: Yes (Other)
  Sender: FDA-Public Use
  Company Number: US-ASTRAZENECA-2009UW20603

PATIENT
  Sex: Male

DRUGS (4)
  1. SEROQUEL [Suspect]
     Dosage: 100 MG TAB TAKE ONE AND ONE-HALF TABLETS BY MOUTH AT BEDTIME
     Route: 048
     Dates: start: 20080213
  2. ASPIRIN [Concomitant]
     Route: 048
     Dates: start: 20090306
  3. HYDROCHLOROTHIAZIDE [Concomitant]
     Dosage: 25 MG TAB TAKE ONE-HALF TABLET BY
     Route: 048
     Dates: start: 20090306
  4. METOPROLOL TARTRATE [Concomitant]
     Route: 048
     Dates: start: 20090306

REACTIONS (3)
  - DIABETES MELLITUS [None]
  - KETOACIDOSIS [None]
  - PANCREATITIS [None]
